FAERS Safety Report 7546015-6 (Version None)
Quarter: 2011Q2

REPORT INFORMATION
  Report Type: 
  Country: None (occurrence: None)
  Receive Date: 20110614
  Receipt Date: 20110530
  Transmission Date: 20111010
  Serious: Yes (Other)
  Sender: FDA-Public Use
  Company Number: FR-SANOFI-AVENTIS-2011SA034996

PATIENT
  Age: 75 Year
  Sex: Male

DRUGS (3)
  1. ALFUZOSIN HCL [Suspect]
     Indication: PROSTATITIS
     Route: 048
  2. VITAMIN B1 TAB [Suspect]
     Indication: ALCOHOLISM
     Route: 048
     Dates: start: 20110307
  3. TROSPIUM CHLORIDE [Suspect]
     Route: 048
     Dates: start: 20100910

REACTIONS (4)
  - HEADACHE [None]
  - EPISTAXIS [None]
  - HYPERTENSIVE CRISIS [None]
  - ARRHYTHMIA [None]
